FAERS Safety Report 5338296-4 (Version None)
Quarter: 2007Q2

REPORT INFORMATION
  Report Type: 
  Country: None (occurrence: None)
  Receive Date: 20070327
  Receipt Date: 20070201
  Transmission Date: 20071010
  Serious: No
  Sender: FDA-Public Use
  Company Number: 234781

PATIENT
  Age: 52 Year
  Sex: Female

DRUGS (1)
  1. AVASTIN [Suspect]
     Indication: NEOVASCULARISATION
     Dosage: 1/MONTH, INTRAVITREAL
     Route: 042
     Dates: start: 20061222

REACTIONS (1)
  - GASTROENTERITIS VIRAL [None]
